FAERS Safety Report 8871562 (Version 3)
Quarter: 2012Q4

REPORT INFORMATION
  Report Type: 
  Country: US (occurrence: US)
  Receive Date: 20121029
  Receipt Date: 20121121
  Transmission Date: 20130627
  Serious: Yes (Other)
  Sender: FDA-Public Use
  Company Number: US-FRI-1000039901

PATIENT
  Age: 29 None
  Sex: Female
  Weight: 92.98 kg

DRUGS (8)
  1. VIIBRYD [Suspect]
     Indication: DEPRESSION
     Dosage: 10 mg
     Route: 048
     Dates: start: 20120629, end: 20120705
  2. VIIBRYD [Suspect]
     Dosage: 20 mg
     Route: 048
     Dates: start: 20120706, end: 20120712
  3. VIIBRYD [Suspect]
     Indication: DEPRESSION
     Dosage: 40 mg
     Route: 048
     Dates: start: 20120713, end: 20120910
  4. VIIBRYD [Suspect]
     Indication: DEPRESSION
     Dosage: 20 mg
     Route: 048
     Dates: start: 20120911, end: 2012
  5. VIIBRYD [Suspect]
     Dosage: 10 mg
     Route: 048
     Dates: start: 2012
  6. WELLBUTRIN [Suspect]
     Indication: DEPRESSION
     Dosage: 300 mg
     Route: 048
     Dates: start: 200901, end: 20121001
  7. LAMICTAL [Concomitant]
     Dosage: 75 mg
  8. KLONOPIN [Concomitant]
     Dosage: as needed

REACTIONS (4)
  - Convulsion [Recovered/Resolved]
  - Head injury [Recovered/Resolved]
  - Agitation [Recovered/Resolved]
  - Irritability [Recovered/Resolved]
